FAERS Safety Report 8205392-3 (Version None)
Quarter: 2012Q1

REPORT INFORMATION
  Report Type: 
  Country: None (occurrence: None)
  Receive Date: 20120313
  Receipt Date: 20120302
  Transmission Date: 20120608
  Serious: Yes (Death, Hospitalization)
  Sender: FDA-Public Use
  Company Number: FR-UCBSA-052689

PATIENT
  Sex: Female
  Weight: 0.8 kg

DRUGS (3)
  1. CORTICOSTEROIDS [Concomitant]
     Route: 064
     Dates: start: 20111208, end: 20111209
  2. KEPPRA [Suspect]
     Indication: EPILEPSY
     Route: 064
     Dates: start: 20110617, end: 20111212
  3. URBANYL [Suspect]
     Indication: EPILEPSY
     Route: 064
     Dates: start: 20110617, end: 20111212

REACTIONS (16)
  - ILEUS [None]
  - HYPERTENSION NEONATAL [None]
  - INFANTILE APNOEIC ATTACK [None]
  - PATENT DUCTUS ARTERIOSUS [None]
  - RENAL FAILURE NEONATAL [None]
  - FOETAL EXPOSURE DURING PREGNANCY [None]
  - HAEMATURIA [None]
  - ABDOMINAL DISTENSION [None]
  - FOETAL GROWTH RESTRICTION [None]
  - PREMATURE BABY [None]
  - FOETAL HEART RATE ABNORMAL [None]
  - MECONIUM ILEUS [None]
  - TRANSVERSE PRESENTATION [None]
  - NEONATAL RESPIRATORY DISTRESS SYNDROME [None]
  - JAUNDICE NEONATAL [None]
  - NEONATAL ANURIA [None]
